FAERS Safety Report 9127403 (Version 1)
Quarter: 2013Q1

REPORT INFORMATION
  Report Type: Spontaneous
  Country: US (occurrence: US)
  Receive Date: 20130228
  Receipt Date: 20130228
  Transmission Date: 20140127
  Serious: No
  Sender: FDA-Public Use
  Company Number: US-GLAXOSMITHKLINE-A0973398A

PATIENT
  Age: 47 Year
  Sex: Female

DRUGS (3)
  1. LAMICTAL [Suspect]
     Indication: FACIAL PAIN
     Dosage: 25MG ALTERNATE DAYS
     Route: 048
     Dates: start: 20120330
  2. NEURONTIN [Concomitant]
     Dates: end: 20120405
  3. PREVACID [Concomitant]

REACTIONS (2)
  - Hypoaesthesia [Not Recovered/Not Resolved]
  - Burning sensation [Unknown]
